FAERS Safety Report 24005550 (Version 1)
Quarter: 2024Q2

REPORT INFORMATION
  Report Type: Spontaneous
  Country: US (occurrence: None)
  Receive Date: 20240622
  Receipt Date: 20240622
  Transmission Date: 20240715
  Serious: Yes (Hospitalization)
  Sender: FDA-Public Use
  Company Number: None

PATIENT
  Age: 68 Year
  Sex: Male

DRUGS (2)
  1. ACETAMINOPHEN\OXYCODONE HYDROCHLORIDE [Suspect]
     Active Substance: ACETAMINOPHEN\OXYCODONE HYDROCHLORIDE
     Indication: Pain
     Dates: start: 20230101
  2. ACETAMINOPHEN\HYDROCODONE [Suspect]
     Active Substance: ACETAMINOPHEN\HYDROCODONE
     Indication: Pain
     Dates: start: 20070101

REACTIONS (11)
  - Respiratory depression [None]
  - Chronic obstructive pulmonary disease [None]
  - Hypoxia [None]
  - Septic shock [None]
  - Unresponsive to stimuli [None]
  - Accidental overdose [None]
  - Fibromyalgia [None]
  - Acute kidney injury [None]
  - Dehydration [None]
  - Tachycardia [None]
  - Hypotension [None]

NARRATIVE: CASE EVENT DATE: 20230601
